FAERS Safety Report 14236179 (Version 1)
Quarter: 2017Q4

REPORT INFORMATION
  Report Type: Spontaneous
  Country: FR (occurrence: FR)
  Receive Date: 20171129
  Receipt Date: 20171129
  Transmission Date: 20180321
  Serious: Yes (Other)
  Sender: FDA-Public Use
  Company Number: FR-BAYER-2017-226600

PATIENT
  Age: 73 Year
  Sex: Male

DRUGS (4)
  1. STIVARGA [Suspect]
     Active Substance: REGORAFENIB
     Indication: METASTASES TO LUNG
     Dosage: 120 MG, QD
     Dates: start: 2017
  2. STIVARGA [Suspect]
     Active Substance: REGORAFENIB
     Indication: METASTASES TO LUNG
     Dosage: UNK, REDUCED
     Dates: start: 201705
  3. STIVARGA [Suspect]
     Active Substance: REGORAFENIB
     Indication: METASTASES TO LUNG
     Dosage: 160 MG, QD
     Dates: start: 2017, end: 2017
  4. STIVARGA [Suspect]
     Active Substance: REGORAFENIB
     Indication: METASTASES TO LUNG
     Dosage: 160 MG, QD
     Dates: start: 201610

REACTIONS (6)
  - Mucosal inflammation [None]
  - Skin reaction [None]
  - Retinal detachment [None]
  - Skin disorder [None]
  - Diarrhoea [None]
  - Hypothyroidism [None]
